FAERS Safety Report 8914117 (Version 1)
Quarter: 2012Q4

REPORT INFORMATION
  Report Type: 
  Country: IN (occurrence: IN)
  Receive Date: 20121116
  Receipt Date: 20121116
  Transmission Date: 20130627
  Serious: Yes (Other)
  Sender: FDA-Public Use
  Company Number: IN-BRISTOL-MYERS SQUIBB COMPANY-17106857

PATIENT
  Age: 2 Year
  Sex: Male

DRUGS (5)
  1. STREPTOMYCIN [Suspect]
     Indication: MENINGITIS TUBERCULOUS
  2. ISONIAZID [Suspect]
     Indication: MENINGITIS TUBERCULOUS
     Dosage: 13 months
  3. RIFAMPICIN [Suspect]
     Indication: MENINGITIS TUBERCULOUS
     Dosage: 13 months
  4. ETHAMBUTOL [Suspect]
     Indication: MENINGITIS TUBERCULOUS
     Dosage: 3 months
  5. OFLOXACIN [Suspect]
     Indication: MENINGITIS TUBERCULOUS

REACTIONS (1)
  - Tuberculoma of central nervous system [Unknown]
